FAERS Safety Report 4903778-3 (Version None)
Quarter: 2006Q1

REPORT INFORMATION
  Report Type: 
  Country: None (occurrence: None)
  Receive Date: 20060208
  Receipt Date: 20050623
  Transmission Date: 20060701
  Serious: No
  Sender: FDA-Public Use
  Company Number: US-GLAXOSMITHKLINE-A0563934A

PATIENT
  Age: 61 Year
  Sex: Female

DRUGS (12)
  1. PAROXETINE HCL [Suspect]
     Indication: DEPRESSION
     Dosage: 30MG TWICE PER DAY
     Route: 048
  2. ISOSORBIDE [Concomitant]
  3. ZOCOR [Concomitant]
  4. VERAPAMIL [Concomitant]
  5. ALLEGRA [Concomitant]
  6. XANAX [Concomitant]
  7. AVINZA [Concomitant]
  8. ECOTRIN [Concomitant]
  9. CALTRATE [Concomitant]
  10. UNKNOWN MEDICATION [Concomitant]
  11. CENTRUM SILVER [Concomitant]
  12. HYDROCODONE BITARTRATE [Concomitant]

REACTIONS (5)
  - ANXIETY [None]
  - CHEST PAIN [None]
  - DEPRESSED MOOD [None]
  - DRUG INEFFECTIVE [None]
  - INSOMNIA [None]
